FAERS Safety Report 15246072 (Version 1)
Quarter: 2018Q3

REPORT INFORMATION
  Report Type: Spontaneous
  Country: US (occurrence: US)
  Receive Date: 20180806
  Receipt Date: 20180806
  Transmission Date: 20181010
  Serious: Yes (Hospitalization, Other)
  Sender: FDA-Public Use
  Company Number: US-OTSUKA-2018_023937

PATIENT
  Sex: Female

DRUGS (4)
  1. ABILIFY [Suspect]
     Active Substance: ARIPIPRAZOLE
     Indication: BIPOLAR DISORDER
     Dosage: UNK
     Route: 065
  2. ABILIFY [Suspect]
     Active Substance: ARIPIPRAZOLE
     Indication: SCHIZOPHRENIA
     Dosage: 10?15MG, QD
     Route: 065
     Dates: start: 20070901, end: 20180430
  3. ABILIFY [Suspect]
     Active Substance: ARIPIPRAZOLE
     Indication: ANXIETY
  4. ABILIFY [Suspect]
     Active Substance: ARIPIPRAZOLE
     Indication: POST-TRAUMATIC STRESS DISORDER

REACTIONS (13)
  - Suicide attempt [Recovered/Resolved]
  - Product use in unapproved indication [Unknown]
  - Shoplifting [Recovered/Resolved]
  - Obsessive-compulsive disorder [Unknown]
  - Theft [Recovered/Resolved]
  - Compulsive shopping [Recovered/Resolved]
  - Trichotillomania [Recovered/Resolved]
  - Mental disorder [Unknown]
  - Compulsive sexual behaviour [Recovered/Resolved]
  - Gambling disorder [Recovered/Resolved]
  - Dermatillomania [Recovered/Resolved]
  - Economic problem [Unknown]
  - Suicidal ideation [Recovered/Resolved]

NARRATIVE: CASE EVENT DATE: 20080101
